FAERS Safety Report 9255056 (Version 1)
Quarter: 2013Q2

REPORT INFORMATION
  Report Type: Spontaneous
  Country: US (occurrence: US)
  Receive Date: 20130425
  Receipt Date: 20130425
  Transmission Date: 20140414
  Serious: No
  Sender: FDA-Public Use
  Company Number: US-PFIZER INC-2013125433

PATIENT
  Age: 43 Year
  Sex: Male
  Weight: 141 kg

DRUGS (2)
  1. VIAGRA [Suspect]
     Indication: ERECTILE DYSFUNCTION
     Dosage: 5 DF, SINGLE
     Dates: start: 20130418, end: 20130418
  2. CLARITIN [Concomitant]
     Indication: IRRITABLE BOWEL SYNDROME
     Dosage: UNK

REACTIONS (2)
  - Erection increased [Not Recovered/Not Resolved]
  - Somnolence [Unknown]
